FAERS Safety Report 15602523 (Version 1)
Quarter: 2018Q4

REPORT INFORMATION
  Report Type: Spontaneous
  Country: CA (occurrence: CA)
  Receive Date: 20181109
  Receipt Date: 20181109
  Transmission Date: 20190205
  Serious: Yes (Other)
  Sender: FDA-Public Use
  Company Number: CA-PFIZER INC-2018449635

PATIENT
  Age: 32 Year
  Sex: Female

DRUGS (6)
  1. SYNTHROID [Concomitant]
     Active Substance: LEVOTHYROXINE SODIUM
     Dosage: 0.175 MG, BEFORE BREAKFAST
     Route: 048
  2. CORTEF [Suspect]
     Active Substance: HYDROCORTISONE
     Dosage: 10 MG 1TAB AT BREAKFAST AND 1/2 TAB AT SUPPER
     Route: 048
  3. ALYSENA [Concomitant]
     Dosage: 0.02MG-0.1MD DAILY, STOP 1 WEEK EVERY 3 MONTHS
     Route: 048
  4. DESMOPRESSIN [Concomitant]
     Active Substance: DESMOPRESSIN
     Dosage: 0.1 MG, 1/2 PILL 4 TIMES A DAY EVERY 6 HOURS
     Route: 048
  5. JAMP VITAMIN D [Concomitant]
     Dosage: 10000 IU, WEEKLY
     Route: 065
  6. CORTEF [Suspect]
     Active Substance: HYDROCORTISONE
     Dosage: DOUBLE THE DOSE FOR 4-5 DAYS IF SICK

REACTIONS (1)
  - Growth hormone deficiency [Unknown]

NARRATIVE: CASE EVENT DATE: 201810
